FAERS Safety Report 5662609-7 (Version None)
Quarter: 2008Q1

REPORT INFORMATION
  Report Type: 
  Country: None (occurrence: None)
  Receive Date: 20080313
  Receipt Date: 20080311
  Transmission Date: 20080703
  Serious: Yes (Hospitalization)
  Sender: FDA-Public Use
  Company Number: GB-BRISTOL-MYERS SQUIBB COMPANY-14112478

PATIENT
  Sex: Female

DRUGS (1)
  1. HYDREA [Suspect]
     Indication: MYELODYSPLASTIC SYNDROME

REACTIONS (2)
  - DYSPHAGIA [None]
  - INFECTION [None]
